FAERS Safety Report 4593409-7 (Version None)
Quarter: 2005Q1

REPORT INFORMATION
  Report Type: 
  Country: None (occurrence: None)
  Receive Date: 20050224
  Receipt Date: 20040615
  Transmission Date: 20050727
  Serious: No
  Sender: FDA-Public Use
  Company Number: US-BRISTOL-MYERS SQUIBB COMPANY-12617049

PATIENT
  Age: 57 Year
  Sex: Male

DRUGS (2)
  1. EXCEDRIN (MIGRAINE) [Suspect]
  2. EXCEDRIN ES ASA FREE [Suspect]
     Indication: HEADACHE
     Dosage: 2 TO 6 DOSAGE FORMS DAILY

REACTIONS (3)
  - DEPENDENCE [None]
  - GASTRIC DISORDER [None]
  - HEADACHE [None]
